FAERS Safety Report 16518109 (Version 1)
Quarter: 2019Q3

REPORT INFORMATION
  Report Type: Spontaneous
  Country: JP (occurrence: JP)
  Receive Date: 20190702
  Receipt Date: 20190702
  Transmission Date: 20191004
  Serious: Yes (Other)
  Sender: FDA-Public Use
  Company Number: JP-PFIZER INC-2019250108

PATIENT
  Age: 45 Year
  Sex: Female

DRUGS (1)
  1. LORBRENA [Suspect]
     Active Substance: LORLATINIB
     Dosage: 100 MG, DAILY
     Route: 048
     Dates: start: 20190529

REACTIONS (8)
  - Tachycardia [Not Recovered/Not Resolved]
  - Haematuria [Unknown]
  - Fibrin D dimer increased [Not Recovered/Not Resolved]
  - Blood triglycerides increased [Unknown]
  - Renal impairment [Unknown]
  - Proteinuria [Unknown]
  - Blood cholesterol increased [Unknown]
  - Dizziness [Recovered/Resolved]

NARRATIVE: CASE EVENT DATE: 2019
